FAERS Safety Report 18673327 (Version 4)
Quarter: 2021Q1

REPORT INFORMATION
  Report Type: Other
  Country: CA (occurrence: CA)
  Receive Date: 20201229
  Receipt Date: 20210210
  Transmission Date: 20210419
  Serious: Yes (Hospitalization)
  Sender: FDA-Public Use
  Company Number: CA-ROCHE-2709166

PATIENT
  Age: 33 Year
  Sex: Female

DRUGS (10)
  1. XOLAIR [Suspect]
     Active Substance: OMALIZUMAB
     Indication: MASTOCYTOSIS
     Route: 058
     Dates: start: 20170405
  2. SYMBICORT [Concomitant]
     Active Substance: BUDESONIDE\FORMOTEROL FUMARATE DIHYDRATE
     Indication: ASTHMA
     Dosage: 2 DF, (200 UG, BUDESONIDE, 6 UG FORMOTEROL FUMARATE) BID
     Route: 055
     Dates: start: 20160815
  3. TETRAHYDROCANNABINOL [Concomitant]
     Active Substance: DRONABINOL
     Indication: PRODUCT USED FOR UNKNOWN INDICATION
     Dosage: 2.5 MG, TID
     Route: 065
  4. DIAMOX SEQUELS [Concomitant]
     Active Substance: ACETAZOLAMIDE
     Dosage: 1 DF, 2 PILLS TID (250/TABS)
     Route: 065
  5. DICETEL [Concomitant]
     Active Substance: PINAVERIUM BROMIDE
     Indication: IRRITABLE BOWEL SYNDROME
     Dosage: 1 DF, UNK
     Route: 048
     Dates: start: 20010101
  6. CLONAZEPAM. [Concomitant]
     Active Substance: CLONAZEPAM
     Indication: PRODUCT USED FOR UNKNOWN INDICATION
     Dosage: 0.5 MG, QD
     Route: 065
  7. SYMBICORT [Concomitant]
     Active Substance: BUDESONIDE\FORMOTEROL FUMARATE DIHYDRATE
     Dosage: 3 DF, QD
     Route: 055
  8. DIAMOX SEQUELS [Concomitant]
     Active Substance: ACETAZOLAMIDE
     Dosage: 500 MG 2 TABLETS THRICE A DAY HAD DECREASED BY 62.5 MG
     Route: 065
  9. XOLAIR [Suspect]
     Active Substance: OMALIZUMAB
     Indication: ASTHMA
     Route: 058
     Dates: start: 20200311
  10. AXERT [Concomitant]
     Active Substance: ALMOTRIPTAN MALATE
     Indication: MIGRAINE
     Dosage: 12.5 MG, PRN (1DF)
     Route: 048
     Dates: start: 20080101

REACTIONS (25)
  - Paraesthesia [Unknown]
  - Coccydynia [Unknown]
  - Pain [Unknown]
  - Back pain [Unknown]
  - Feeling jittery [Unknown]
  - Neurological symptom [Unknown]
  - Decreased appetite [Unknown]
  - Adverse drug reaction [Unknown]
  - Inflammation [Unknown]
  - Anal incontinence [Unknown]
  - Blood pressure decreased [Unknown]
  - Feeling cold [Unknown]
  - Hemiparesis [Unknown]
  - Muscular weakness [Unknown]
  - Feeling abnormal [Unknown]
  - Insomnia [Unknown]
  - Off label use [Unknown]
  - Gait disturbance [Unknown]
  - Hypoaesthesia [Unknown]
  - Spinal pain [Unknown]
  - Mass [Unknown]
  - Autonomic nervous system imbalance [Unknown]
  - Palpitations [Unknown]
  - Sensory disturbance [Unknown]
  - Intentional product use issue [Unknown]

NARRATIVE: CASE EVENT DATE: 20201015
